FAERS Safety Report 18144406 (Version 1)
Quarter: 2020Q3

REPORT INFORMATION
  Report Type: Spontaneous
  Country: US (occurrence: US)
  Receive Date: 20200812
  Receipt Date: 20200812
  Transmission Date: 20201103
  Serious: Yes (Death, Other)
  Sender: FDA-Public Use
  Company Number: None

PATIENT
  Sex: Male

DRUGS (1)
  1. TESTOSTERONE 25 MG/2.5GM(1%) GEL [Suspect]
     Active Substance: TESTOSTERONE

REACTIONS (1)
  - Death [None]
